FAERS Safety Report 6405321-9 (Version None)
Quarter: 2009Q4

REPORT INFORMATION
  Report Type: 
  Country: None (occurrence: None)
  Receive Date: 20091019
  Receipt Date: 20091009
  Transmission Date: 20100525
  Serious: Yes (Other)
  Sender: FDA-Public Use
  Company Number: JP-ASTRAZENECA-2009SE19515

PATIENT
  Age: 2 Year
  Sex: Male

DRUGS (1)
  1. OMEPRAL [Suspect]
     Dosage: 20 MG X 10
     Route: 048

REACTIONS (1)
  - ACCIDENTAL POISONING [None]
